FAERS Safety Report 7788635-X (Version None)
Quarter: 2011Q3

REPORT INFORMATION
  Report Type: 
  Country: None (occurrence: None)
  Receive Date: 20110930
  Receipt Date: 20110920
  Transmission Date: 20111222
  Serious: Yes (Other)
  Sender: FDA-Public Use
  Company Number: JP-BRISTOL-MYERS SQUIBB COMPANY-15462443

PATIENT
  Age: 26 Year
  Sex: Female
  Weight: 48 kg

DRUGS (4)
  1. PROMAZINE HYDROCHLORIDE [Concomitant]
     Dosage: TABS
     Dates: start: 20101116, end: 20101207
  2. ALOSENN [Concomitant]
     Dates: start: 20100112
  3. SENNOSIDE [Concomitant]
     Dosage: TABS
     Dates: start: 20110423
  4. ABILIFY [Suspect]
     Indication: SCHIZOPHRENIA
     Dosage: DOSE INCREASED TO 6MG ON 16NOV10, THEN REDUCED TO 3MG ON 14MAR11 6MG: 16-13MAR11.
     Route: 048
     Dates: start: 20101113

REACTIONS (4)
  - PREGNANCY [None]
  - NORMAL NEWBORN [None]
  - EXPOSURE DURING BREAST FEEDING [None]
  - ABORTION THREATENED [None]
